FAERS Safety Report 17315560 (Version 1)
Quarter: 2020Q1

REPORT INFORMATION
  Report Type: Spontaneous
  Country: US (occurrence: US)
  Receive Date: 20200124
  Receipt Date: 20200124
  Transmission Date: 20200409
  Serious: Yes (Other)
  Sender: FDA-Public Use
  Company Number: US-JNJFOC-20200124995

PATIENT
  Sex: Female

DRUGS (2)
  1. DURAGESIC [Suspect]
     Active Substance: FENTANYL
     Indication: PRODUCT USED FOR UNKNOWN INDICATION
     Route: 062
  2. DURAGESIC [Suspect]
     Active Substance: FENTANYL
     Dosage: STRENGTH: 100 MCG/HR
     Route: 062

REACTIONS (5)
  - Fall [Unknown]
  - Product dose omission [Unknown]
  - Multiple fractures [Unknown]
  - Spinal fracture [Unknown]
  - Adverse event [Unknown]
